FAERS Safety Report 4483914-6 (Version None)
Quarter: 2004Q4

REPORT INFORMATION
  Report Type: 
  Country: None (occurrence: None)
  Receive Date: 20041020
  Receipt Date: 20041005
  Transmission Date: 20050328
  Serious: Yes (Hospitalization)
  Sender: FDA-Public Use
  Company Number: USA041080269

PATIENT
  Age: 42 Year
  Sex: Female

DRUGS (4)
  1. ALIMTA [Suspect]
     Indication: MESOTHELIOMA
     Dosage: 875 MG
     Dates: start: 20040101
  2. ALIMTA [Suspect]
     Indication: PERICARDIAL DISEASE
     Dosage: 875 MG
     Dates: start: 20040101
  3. CARBOPLATIN (CARBOPLATIN SANOFI-SYNTHELABO) [Concomitant]
  4. FOLIC ACID [Concomitant]

REACTIONS (1)
  - STOMATITIS [None]
